FAERS Safety Report 13726197 (Version 1)
Quarter: 2017Q3

REPORT INFORMATION
  Report Type: Spontaneous
  Country: US (occurrence: US)
  Receive Date: 20170706
  Receipt Date: 20170706
  Transmission Date: 20171127
  Serious: Yes (Other)
  Sender: FDA-Public Use
  Company Number: US-PFIZER INC-2017286095

PATIENT
  Age: 60 Year
  Sex: Female

DRUGS (1)
  1. ZIPRASIDONE HCL [Suspect]
     Active Substance: ZIPRASIDONE HYDROCHLORIDE
     Indication: MENTAL DISORDER
     Dosage: UNK
     Dates: start: 2016

REACTIONS (5)
  - Hallucination, auditory [Unknown]
  - Feeling abnormal [Unknown]
  - Memory impairment [Unknown]
  - Hallucination, visual [Unknown]
  - Drug ineffective [Unknown]
